FAERS Safety Report 8968333 (Version 3)
Quarter: 2013Q4

REPORT INFORMATION
  Report Type: Spontaneous
  Country: GB (occurrence: GB)
  Receive Date: 20121217
  Receipt Date: 20131022
  Transmission Date: 20140711
  Serious: Yes (Death, Other)
  Sender: FDA-Public Use
  Company Number: GB-ROCHE-1170135

PATIENT
  Age: 22 Year
  Sex: 0
  Weight: 65 kg

DRUGS (4)
  1. ROACCUTANE [Suspect]
     Indication: ACNE
     Route: 048
     Dates: start: 2005
  2. ROACCUTANE [Suspect]
     Route: 048
     Dates: start: 20090101, end: 20090401
  3. BUPROPION HYDROCHLORIDE [Concomitant]
     Indication: DEPRESSION
     Route: 048
     Dates: start: 20110128
  4. BUPROPION HYDROCHLORIDE [Concomitant]
     Indication: SEXUAL DYSFUNCTION

REACTIONS (3)
  - Completed suicide [Fatal]
  - Depression [Not Recovered/Not Resolved]
  - Sexual dysfunction [Not Recovered/Not Resolved]
